FAERS Safety Report 6853625-8 (Version None)
Quarter: 2010Q3

REPORT INFORMATION
  Report Type: 
  Country: None (occurrence: None)
  Receive Date: 20100717
  Receipt Date: 20071211
  Transmission Date: 20110219
  Serious: No
  Sender: FDA-Public Use
  Company Number: US-PFIZER INC-2007105625

PATIENT
  Sex: Male
  Weight: 65.8 kg

DRUGS (4)
  1. CHANTIX [Suspect]
     Indication: SMOKING CESSATION THERAPY
     Dates: start: 20071201
  2. FINASTERIDE [Concomitant]
     Indication: PROSTATOMEGALY
  3. LOVASTATIN [Concomitant]
     Indication: BLOOD CHOLESTEROL INCREASED
  4. HYZAAR [Concomitant]
     Indication: HYPERTENSION

REACTIONS (1)
  - DYSURIA [None]
